FAERS Safety Report 4922152-7 (Version None)
Quarter: 2006Q1

REPORT INFORMATION
  Report Type: 
  Country: None (occurrence: None)
  Receive Date: 20060224
  Receipt Date: 20050829
  Transmission Date: 20060701
  Serious: Yes (Hospitalization)
  Sender: FDA-Public Use
  Company Number: US-MERCK-0508USA04942

PATIENT
  Age: 43 Year
  Sex: Male
  Weight: 109 kg

DRUGS (4)
  1. VIOXX [Suspect]
     Indication: ARTHRITIS
     Route: 048
     Dates: start: 20040601, end: 20040101
  2. NEXIUM [Concomitant]
     Route: 065
  3. HYDROCODONE BITARTRATE [Concomitant]
     Route: 065
  4. LEXAPRO [Concomitant]
     Route: 065

REACTIONS (2)
  - ANGINA PECTORIS [None]
  - CEREBROVASCULAR ACCIDENT [None]
